FAERS Safety Report 11650440 (Version 1)
Quarter: 2015Q4

REPORT INFORMATION
  Report Type: Report from Study
  Country: US (occurrence: US)
  Receive Date: 20151021
  Receipt Date: 20151021
  Transmission Date: 20160304
  Serious: No
  Sender: FDA-Public Use
  Company Number: US-ABBVIE-14P-163-1299142-00

PATIENT
  Age: 49 Year
  Sex: Female
  Weight: 62.2 kg

DRUGS (2)
  1. LUPRON DEPOT [Suspect]
     Active Substance: LEUPROLIDE ACETATE
     Indication: DYSFUNCTIONAL UTERINE BLEEDING
     Route: 030
     Dates: start: 201403, end: 20140806
  2. LUPRON DEPOT [Suspect]
     Active Substance: LEUPROLIDE ACETATE
     Indication: DYSFUNCTIONAL UTERINE BLEEDING
     Route: 030
     Dates: start: 201409

REACTIONS (2)
  - Off label use [Unknown]
  - Palpitations [Not Recovered/Not Resolved]

NARRATIVE: CASE EVENT DATE: 201409
